FAERS Safety Report 15358410 (Version 3)
Quarter: 2018Q4

REPORT INFORMATION
  Report Type: Report from Study
  Country: None (occurrence: IL)
  Receive Date: 20180906
  Receipt Date: 20181003
  Transmission Date: 20190204
  Serious: Yes (Life-Threatening, Hospitalization)
  Sender: FDA-Public Use
  Company Number: IL-ABBVIE-18P-082-2470801-00

PATIENT
  Age: 80 Year
  Sex: Female

DRUGS (39)
  1. ENOXAPARIN SODIUM. [Concomitant]
     Active Substance: ENOXAPARIN SODIUM
     Indication: EMBOLISM
     Route: 058
     Dates: start: 20180514, end: 20180914
  2. SERETIDE D [Concomitant]
     Route: 055
     Dates: start: 20180109, end: 20180914
  3. VENETOCLAX. [Suspect]
     Active Substance: VENETOCLAX
     Route: 048
     Dates: start: 20180104, end: 20180124
  4. OMEPRAZOLE. [Concomitant]
     Active Substance: OMEPRAZOLE
     Indication: PROPHYLAXIS
     Route: 048
     Dates: start: 20171225, end: 20171227
  5. FLUCONAZOLE. [Concomitant]
     Active Substance: FLUCONAZOLE
     Route: 042
     Dates: start: 20180810, end: 20180811
  6. FLUCONAZOLE. [Concomitant]
     Active Substance: FLUCONAZOLE
     Route: 042
     Dates: start: 20180812, end: 20180822
  7. FLUCONAZOLE. [Concomitant]
     Active Substance: FLUCONAZOLE
     Route: 042
     Dates: start: 20180828, end: 20180913
  8. SERETIDE D [Concomitant]
     Route: 055
     Dates: start: 20171230, end: 20171230
  9. VENETOCLAX. [Suspect]
     Active Substance: VENETOCLAX
     Indication: ACUTE MYELOID LEUKAEMIA
     Route: 048
     Dates: start: 20180102, end: 20180102
  10. VANCOMYCIN [Concomitant]
     Active Substance: VANCOMYCIN
     Indication: OSTEOMYELITIS
     Route: 042
     Dates: start: 20180803, end: 20180819
  11. PREGABALIN. [Concomitant]
     Active Substance: PREGABALIN
     Indication: OSTEOMYELITIS
     Route: 048
     Dates: start: 20180812, end: 20180812
  12. FENTANYL TRANSDERMAL SYSTEM [Concomitant]
     Active Substance: FENTANYL
     Route: 003
     Dates: start: 20180828, end: 20180913
  13. VENETOCLAX. [Suspect]
     Active Substance: VENETOCLAX
     Route: 048
     Dates: start: 20180125, end: 20180125
  14. VANCOMYCIN [Concomitant]
     Active Substance: VANCOMYCIN
     Route: 042
     Dates: start: 20180819, end: 20180820
  15. VANCOMYCIN [Concomitant]
     Active Substance: VANCOMYCIN
     Route: 042
     Dates: start: 20180821, end: 20180911
  16. SERETIDE D [Concomitant]
     Route: 055
     Dates: start: 20171231, end: 20171231
  17. SERETIDE D [Concomitant]
     Route: 055
     Dates: start: 20180102, end: 20180103
  18. FENTANYL CITRATE. [Concomitant]
     Active Substance: FENTANYL CITRATE
     Route: 048
     Dates: start: 20180828, end: 20180912
  19. CIPROFLOXACIN. [Concomitant]
     Active Substance: CIPROFLOXACIN
     Indication: OSTEOMYELITIS
     Route: 048
     Dates: start: 20180820, end: 20180904
  20. AZACITIDINE. [Suspect]
     Active Substance: AZACITIDINE
     Indication: ACUTE MYELOID LEUKAEMIA
     Dosage: DAYS 1 TO 7 OF 28 DAYS CYCLE
     Route: 058
     Dates: start: 20180102, end: 20180718
  21. VANCOMYCIN [Concomitant]
     Active Substance: VANCOMYCIN
     Route: 042
     Dates: start: 20180912, end: 20180914
  22. PREGABALIN. [Concomitant]
     Active Substance: PREGABALIN
     Route: 048
     Dates: start: 20180813, end: 20180814
  23. SERETIDE D [Concomitant]
     Route: 055
     Dates: start: 20171229, end: 20171229
  24. SERETIDE D [Concomitant]
     Route: 055
     Dates: start: 20180101, end: 20180101
  25. FENTANYL CITRATE. [Concomitant]
     Active Substance: FENTANYL CITRATE
     Route: 048
     Dates: start: 20180810, end: 20180822
  26. OMEPRAZOLE. [Concomitant]
     Active Substance: OMEPRAZOLE
     Route: 048
     Dates: start: 20171229, end: 20180903
  27. PREGABALIN. [Concomitant]
     Active Substance: PREGABALIN
     Route: 048
     Dates: start: 20180815, end: 20180911
  28. SERETIDE D [Concomitant]
     Indication: ASTHMA
     Route: 055
     Dates: start: 20171226, end: 20171227
  29. SERETIDE D [Concomitant]
     Route: 055
     Dates: start: 20180104, end: 20180108
  30. OMEPRAZOLE. [Concomitant]
     Active Substance: OMEPRAZOLE
     Route: 048
     Dates: start: 20180803, end: 20180914
  31. FENTANYL TRANSDERMAL SYSTEM [Concomitant]
     Active Substance: FENTANYL
     Route: 003
     Dates: start: 20180819, end: 20180822
  32. CIPROFLOXACIN. [Concomitant]
     Active Substance: CIPROFLOXACIN
     Route: 042
     Dates: start: 20180904, end: 20180912
  33. VENETOCLAX. [Suspect]
     Active Substance: VENETOCLAX
     Route: 048
     Dates: start: 20180103, end: 20180103
  34. VENETOCLAX. [Suspect]
     Active Substance: VENETOCLAX
     Route: 048
     Dates: start: 20180126, end: 20180803
  35. VANCOMYCIN [Concomitant]
     Active Substance: VANCOMYCIN
     Route: 042
     Dates: start: 20180902, end: 20180911
  36. FLUCONAZOLE. [Concomitant]
     Active Substance: FLUCONAZOLE
     Indication: SYSTEMIC CANDIDA
     Route: 042
     Dates: start: 20180809, end: 20180809
  37. SERETIDE D [Concomitant]
     Route: 055
     Dates: start: 20171228, end: 20171228
  38. FENTANYL CITRATE. [Concomitant]
     Active Substance: FENTANYL CITRATE
     Indication: OSTEOMYELITIS
     Route: 048
     Dates: start: 20180804, end: 20180810
  39. FENTANYL TRANSDERMAL SYSTEM [Concomitant]
     Active Substance: FENTANYL
     Indication: OSTEOMYELITIS
     Route: 003
     Dates: start: 20180814, end: 20180817

REACTIONS (2)
  - Haemorrhage intracranial [Recovered/Resolved]
  - Thrombocytopenia [Recovered/Resolved]

NARRATIVE: CASE EVENT DATE: 20180827
